FAERS Safety Report 10169938 (Version 1)
Quarter: 2014Q2

REPORT INFORMATION
  Report Type: Spontaneous
  Country: US (occurrence: US)
  Receive Date: 20140513
  Receipt Date: 20140513
  Transmission Date: 20141212
  Serious: Yes (Other)
  Sender: FDA-Public Use
  Company Number: US-BAUSCH-BL-2014-002192

PATIENT
  Age: 56 Year
  Sex: Female
  Weight: 81.27 kg

DRUGS (2)
  1. LOTEMAX (LOTEPREDNOL ETABONATE OPHTHALMIC GEL 0.5%) [Suspect]
     Indication: POSTOPERATIVE CARE
     Route: 047
     Dates: start: 20140424, end: 20140424
  2. FML [Concomitant]
     Indication: POSTOPERATIVE CARE

REACTIONS (6)
  - Eye swelling [Recovering/Resolving]
  - Skin discolouration [Recovering/Resolving]
  - Eye discharge [Recovering/Resolving]
  - Inflammation [Recovering/Resolving]
  - Ocular discomfort [Recovering/Resolving]
  - Eye pruritus [Recovering/Resolving]
